FAERS Safety Report 13378327 (Version 2)
Quarter: 2017Q1

REPORT INFORMATION
  Report Type: Spontaneous
  Country: CN (occurrence: CN)
  Receive Date: 20170328
  Receipt Date: 20170331
  Transmission Date: 20170429
  Serious: Yes (Other)
  Sender: FDA-Public Use
  Company Number: CN-PFIZER INC-2017125567

PATIENT
  Age: 26 Year
  Sex: Female

DRUGS (3)
  1. DEXRAZOXANE. [Concomitant]
     Active Substance: DEXRAZOXANE
     Indication: CARDIOTOXICITY
     Dosage: BEFORE THE ADMINISTRATION OF DOXORUBICIN
  2. NEDAPLATIN [Concomitant]
     Active Substance: NEDAPLATIN
     Indication: CHONDROSARCOMA
     Dosage: 60 MG, DAILY FOR 2 CONSECUTIVE DAYS
  3. DOXORUBICIN HCL [Suspect]
     Active Substance: DOXORUBICIN HYDROCHLORIDE
     Indication: CHONDROSARCOMA
     Dosage: 20 MG, EVERY OTHER DAY FOR 5 DAYS
     Route: 042

REACTIONS (1)
  - Sinus bradycardia [Recovered/Resolved]
